FAERS Safety Report 10682880 (Version 2)
Quarter: 2015Q1

REPORT INFORMATION
  Report Type: Report from Study
  Country: MX (occurrence: MX)
  Receive Date: 20141230
  Receipt Date: 20150201
  Transmission Date: 20150720
  Serious: Yes (Other)
  Sender: FDA-Public Use
  Company Number: PHHY2014MX169825

PATIENT
  Sex: Female

DRUGS (7)
  1. VONTROL [Concomitant]
     Active Substance: DIPHENIDOL HYDROCHLORIDE
     Indication: NAUSEA
     Dosage: 1 DF (1 TABLET), UNK
     Route: 048
     Dates: start: 20150123
  2. LYRICA [Concomitant]
     Active Substance: PREGABALIN
     Indication: PRODUCT USED FOR UNKNOWN INDICATION
     Dosage: UNK
     Route: 065
  3. AROPAX [Suspect]
     Active Substance: PAROXETINE HYDROCHLORIDE
     Dosage: 2 DF (0.5 TABLET IN THE MORNING, 0.5 TABLET IN THE AFTERNOON AND 1 TABLET AT NIGHT), QD
     Route: 065
     Dates: start: 2014
  4. DORSAL [Concomitant]
     Indication: PAIN
     Dosage: 1 DF (1 TABLET), QD
     Route: 048
     Dates: start: 20150123
  5. AROPAX [Suspect]
     Active Substance: PAROXETINE HYDROCHLORIDE
     Indication: DEPRESSION
     Dosage: 1 DF (1 TABLET), TID (IN THE MORNING, IN THE AFTERNOON AND AT NIGHT)
     Route: 065
     Dates: start: 2012, end: 2014
  6. TRILEPTAL [Suspect]
     Active Substance: OXCARBAZEPINE
     Indication: EPILEPSY
     Dosage: 1 DF (1 TABLET), TID (IN THE MORNING,  IN THE AFTERNOON AND AT NIGHT)
     Route: 048
  7. TAFIL [Concomitant]
     Active Substance: ALPRAZOLAM
     Indication: PRODUCT USED FOR UNKNOWN INDICATION
     Dosage: UNK
     Route: 065

REACTIONS (9)
  - Inflammation [Not Recovered/Not Resolved]
  - Head injury [Not Recovered/Not Resolved]
  - Brain injury [Not Recovered/Not Resolved]
  - Nervousness [Not Recovered/Not Resolved]
  - Traumatic haematoma [Not Recovered/Not Resolved]
  - Road traffic accident [Not Recovered/Not Resolved]
  - Off label use [Unknown]
  - Dizziness [Not Recovered/Not Resolved]
  - Headache [Not Recovered/Not Resolved]
